FAERS Safety Report 18384056 (Version 5)
Quarter: 2021Q2

REPORT INFORMATION
  Report Type: Spontaneous
  Country: JP (occurrence: JP)
  Receive Date: 20201014
  Receipt Date: 20210617
  Transmission Date: 20210717
  Serious: Yes (Other)
  Sender: FDA-Public Use
  Company Number: JP-PFM-2020-19758

PATIENT
  Age: 4 Month
  Sex: Male
  Weight: 1.8 kg

DRUGS (14)
  1. HEMANGIOL [Suspect]
     Active Substance: PROPRANOLOL HYDROCHLORIDE
     Dosage: 0.5MG/KG TWICE A DAY
     Route: 048
     Dates: start: 20210129
  2. HEMANGIOL [Suspect]
     Active Substance: PROPRANOLOL HYDROCHLORIDE
     Dosage: 2.25 MG/KG TWICE A DAY
     Route: 048
     Dates: start: 20210226
  3. AMBROXOL HYDROCHLORIDE [Concomitant]
     Active Substance: AMBROXOL HYDROCHLORIDE
     Indication: PULMONARY HYPERTENSION
     Dosage: UNK
     Route: 048
     Dates: start: 20200819
  4. PHOSRIBBON [Concomitant]
     Indication: OSTEOPENIA
     Dosage: UNK
     Route: 048
     Dates: start: 20200629
  5. HEMANGIOL [Suspect]
     Active Substance: PROPRANOLOL HYDROCHLORIDE
     Indication: INFANTILE HAEMANGIOMA
     Dosage: 0.2 ML/12 HOURS
     Route: 048
     Dates: start: 20201001, end: 20201005
  6. CARBOCISTEINE [Concomitant]
     Active Substance: CARBOCYSTEINE
     Indication: PULMONARY HYPERTENSION
     Dosage: UNK
     Route: 048
     Dates: start: 20200819
  7. TAZOPIPE [Concomitant]
     Active Substance: PIPERACILLIN SODIUM\TAZOBACTAM SODIUM
     Indication: PULMONARY HYPERTENSION
     Dosage: UNK
     Route: 041
     Dates: start: 20201004, end: 20201010
  8. HEMANGIOL [Suspect]
     Active Substance: PROPRANOLOL HYDROCHLORIDE
     Dosage: 1.5 MG/KG/DAY TWICE A DAY
     Route: 048
     Dates: start: 20210322
  9. CEFAZOLIN NA [Concomitant]
     Active Substance: CEFAZOLIN SODIUM
     Indication: PULMONARY HYPERTENSION
     Dosage: UNK
     Route: 040
     Dates: start: 20200927, end: 20201009
  10. PANVITAN [Concomitant]
     Active Substance: VITAMINS
     Indication: PULMONARY HYPERTENSION
     Dosage: UNK
     Route: 048
     Dates: start: 20200617
  11. JUVELA [Concomitant]
     Active Substance: .ALPHA.-TOCOPHEROL\RETINOL
     Indication: PULMONARY HYPERTENSION
     Dosage: UNK
     Route: 048
     Dates: start: 20200617
  12. ALFAROL [Concomitant]
     Active Substance: ALFACALCIDOL
     Indication: OSTEOPENIA
     Dosage: 0.1 ?G, UNK
     Route: 048
     Dates: start: 20200819
  13. PRANLUKAST [Concomitant]
     Active Substance: PRANLUKAST
     Indication: PULMONARY HYPERTENSION
     Dosage: UNK
     Route: 048
     Dates: start: 20200819
  14. THYRADIN?S [Concomitant]
     Active Substance: LEVOTHYROXINE
     Indication: HYPOTHYROIDISM
     Dosage: 5 ?G, UNK
     Route: 048
     Dates: start: 20200909

REACTIONS (1)
  - Pulmonary hypertension [Recovered/Resolved]

NARRATIVE: CASE EVENT DATE: 20201004
